FAERS Safety Report 8880811 (Version 2)
Quarter: 2012Q4

REPORT INFORMATION
  Report Type: 
  Country: ES (occurrence: ES)
  Receive Date: 20121101
  Receipt Date: 20121106
  Transmission Date: 20130627
  Serious: Yes (Other)
  Sender: FDA-Public Use
  Company Number: ES-VERTEX PHARMACEUTICAL INC.-2012-023844

PATIENT
  Age: 50 Year
  Sex: Male

DRUGS (3)
  1. INCIVO [Suspect]
     Indication: HEPATITIS C
     Dosage: Dosage Form: Tablet
     Route: 065
     Dates: start: 20120816, end: 20121026
  2. RIBAVIRIN [Concomitant]
     Indication: HEPATITIS C
     Dosage: UNK
     Route: 065
     Dates: start: 20120816
  3. PEG-INTERFERON [Concomitant]
     Indication: HEPATITIS C
     Dosage: UNK
     Route: 065
     Dates: start: 20120816

REACTIONS (1)
  - Rash [Recovered/Resolved]
